FAERS Safety Report 17232763 (Version 2)
Quarter: 2020Q1

REPORT INFORMATION
  Report Type: Spontaneous
  Country: US (occurrence: US)
  Receive Date: 20200103
  Receipt Date: 20200122
  Transmission Date: 20200409
  Serious: No
  Sender: FDA-Public Use
  Company Number: US-ACTELION-A-NJ2020-200078

PATIENT
  Age: 63 Year
  Sex: Female
  Weight: 104.31 kg

DRUGS (4)
  1. REVATIO [Concomitant]
     Active Substance: SILDENAFIL CITRATE
  2. OXYGEN. [Concomitant]
     Active Substance: OXYGEN
  3. OPSUMIT [Suspect]
     Active Substance: MACITENTAN
     Indication: PULMONARY ARTERIAL HYPERTENSION
     Dosage: 10 MG, QD
     Route: 048
  4. TYVASO [Concomitant]
     Active Substance: TREPROSTINIL

REACTIONS (11)
  - Eye contusion [Unknown]
  - Unevaluable event [Unknown]
  - Rhinorrhoea [Unknown]
  - Chest pain [Unknown]
  - Upper-airway cough syndrome [Unknown]
  - Oxygen consumption increased [Unknown]
  - Fall [Recovered/Resolved]
  - Face injury [Unknown]
  - Diarrhoea [Unknown]
  - Nasopharyngitis [Unknown]
  - Contusion [Unknown]

NARRATIVE: CASE EVENT DATE: 20191218
